FAERS Safety Report 7091775-4 (Version None)
Quarter: 2010Q4

REPORT INFORMATION
  Report Type: 
  Country: None (occurrence: None)
  Receive Date: 20101109
  Receipt Date: 20101029
  Transmission Date: 20110411
  Serious: Yes (Disabling, Other)
  Sender: FDA-Public Use
  Company Number: JP-MERCK-1009USA04267

PATIENT
  Age: 63 Year
  Sex: Female
  Weight: 54 kg

DRUGS (3)
  1. PEPCID [Suspect]
     Indication: GASTRITIS
     Route: 048
     Dates: start: 20020613, end: 20100115
  2. DOXAZOSIN MESYLATE [Concomitant]
     Route: 048
     Dates: start: 20040527
  3. 8-HOUR BAYER [Concomitant]
     Route: 048
     Dates: start: 20071213, end: 20100119

REACTIONS (3)
  - ESSENTIAL THROMBOCYTHAEMIA [None]
  - SINUSITIS [None]
  - TUBULOINTERSTITIAL NEPHRITIS [None]
